FAERS Safety Report 10196087 (Version 2)
Quarter: 2014Q2

REPORT INFORMATION
  Report Type: Spontaneous
  Country: US (occurrence: US)
  Receive Date: 20140527
  Receipt Date: 20140602
  Transmission Date: 20141212
  Serious: Yes (Hospitalization)
  Sender: FDA-Public Use
  Company Number: US-CELGENEUS-163-21880-14053246

PATIENT
  Age: 74 Year
  Sex: Female
  Weight: 72 kg

DRUGS (4)
  1. REVLIMID [Suspect]
     Indication: PLASMA CELL MYELOMA
     Route: 048
     Dates: start: 20121105, end: 20140422
  2. MLN9708 [Suspect]
     Indication: PLASMA CELL MYELOMA
     Dosage: 4
     Route: 048
     Dates: start: 20121105, end: 20140416
  3. DEXAMETHASONE [Suspect]
     Indication: PLASMA CELL MYELOMA
     Route: 048
     Dates: start: 20121105, end: 20140423
  4. ASA [Suspect]
     Indication: PRODUCT USED FOR UNKNOWN INDICATION
     Route: 048

REACTIONS (1)
  - Oesophageal ulcer [Recovered/Resolved]
